FAERS Safety Report 21843574 (Version 12)
Quarter: 2023Q2

REPORT INFORMATION
  Report Type: Spontaneous
  Country: US (occurrence: US)
  Receive Date: 20230110
  Receipt Date: 20230530
  Transmission Date: 20230722
  Serious: Yes (Hospitalization, Other)
  Sender: FDA-Public Use
  Company Number: US-PFIZER INC-PV202200134039

PATIENT
  Age: 60 Year
  Sex: Female

DRUGS (2)
  1. IBRANCE [Suspect]
     Active Substance: PALBOCICLIB
     Dosage: 75 MG
  2. IBRANCE [Suspect]
     Active Substance: PALBOCICLIB
     Dosage: UNK
     Dates: start: 20230226, end: 2023

REACTIONS (31)
  - Cardiac disorder [Unknown]
  - Dyspnoea [Unknown]
  - Pneumonia [Unknown]
  - Cardiac failure congestive [Unknown]
  - Product dose omission in error [Unknown]
  - Abdominal discomfort [Unknown]
  - Arthralgia [Unknown]
  - Back pain [Unknown]
  - Bone pain [Unknown]
  - Burning sensation [Unknown]
  - Constipation [Unknown]
  - Contusion [Unknown]
  - Chromaturia [Unknown]
  - Diarrhoea [Not Recovered/Not Resolved]
  - Device breakage [Unknown]
  - Dry skin [Unknown]
  - Dysgeusia [Unknown]
  - Dyspepsia [Unknown]
  - Eructation [Unknown]
  - Faeces discoloured [Not Recovered/Not Resolved]
  - Fatigue [Unknown]
  - Musculoskeletal stiffness [Unknown]
  - Nausea [Unknown]
  - Pelvic pain [Unknown]
  - Peripheral swelling [Unknown]
  - Toothache [Not Recovered/Not Resolved]
  - Urinary tract infection [Unknown]
  - Vomiting [Unknown]
  - Nail disorder [Unknown]
  - Oral herpes [Unknown]
  - Stress [Unknown]
